FAERS Safety Report 16134654 (Version 1)
Quarter: 2019Q1

REPORT INFORMATION
  Report Type: Report from Study
  Country: US (occurrence: US)
  Receive Date: 20190329
  Receipt Date: 20190329
  Transmission Date: 20190418
  Serious: Yes (Hospitalization)
  Sender: FDA-Public Use
  Company Number: US-GILEAD-2019-0399150

PATIENT
  Age: 49 Year
  Sex: Female

DRUGS (2)
  1. AMBRISENTAN [Suspect]
     Active Substance: AMBRISENTAN
     Indication: PRODUCT USED FOR UNKNOWN INDICATION
     Dosage: 5 MG, QD
     Route: 065
     Dates: start: 20150626
  2. ADCIRCA [Concomitant]
     Active Substance: TADALAFIL

REACTIONS (6)
  - Palpitations [Unknown]
  - Dizziness [Unknown]
  - Product use issue [Recovered/Resolved]
  - Oxygen saturation decreased [Unknown]
  - Asthenia [Unknown]
  - Dyspnoea [Unknown]
